FAERS Safety Report 21591075 (Version 1)
Quarter: 2022Q4

REPORT INFORMATION
  Report Type: Spontaneous
  Country: CN (occurrence: CN)
  Receive Date: 20221114
  Receipt Date: 20221114
  Transmission Date: 20230113
  Serious: Yes (Other)
  Sender: FDA-Public Use
  Company Number: CN-PFIZER INC-PV202200101399

PATIENT
  Age: 91 Year
  Sex: Male
  Weight: 53 kg

DRUGS (2)
  1. METHYLPREDNISOLONE SODIUM SUCCINATE [Suspect]
     Active Substance: METHYLPREDNISOLONE SODIUM SUCCINATE
     Indication: Therapeutic procedure
     Dosage: 40 MG, 1X/DAY
     Route: 041
     Dates: start: 20221031, end: 20221103
  2. NADROPARIN CALCIUM [Suspect]
     Active Substance: NADROPARIN CALCIUM
     Indication: Therapeutic procedure
     Dosage: 3075.000 UCI, 1X/DAY
     Route: 058
     Dates: start: 20221102, end: 20221103

REACTIONS (2)
  - Lower gastrointestinal haemorrhage [Recovered/Resolved]
  - Faeces discoloured [Recovered/Resolved]

NARRATIVE: CASE EVENT DATE: 20221103
